FAERS Safety Report 17550468 (Version 1)
Quarter: 2020Q1

REPORT INFORMATION
  Report Type: Report from Study
  Country: JP (occurrence: JP)
  Receive Date: 20200317
  Receipt Date: 20200317
  Transmission Date: 20200409
  Serious: Yes (Other)
  Sender: FDA-Public Use
  Company Number: JP-PFIZER INC-2020105340

PATIENT

DRUGS (1)
  1. HYDROCORTISONE SODIUM SUCCINATE [Suspect]
     Active Substance: HYDROCORTISONE SODIUM SUCCINATE
     Indication: TROPICAL SPASTIC PARESIS
     Dosage: 75 MG, UNK (INJECTION)
     Route: 037

REACTIONS (3)
  - Diabetes mellitus [Unknown]
  - Headache [Unknown]
  - Leukopenia [Unknown]
